FAERS Safety Report 6733280-8 (Version None)
Quarter: 2010Q2

REPORT INFORMATION
  Report Type: 
  Country: None (occurrence: None)
  Receive Date: 20100520
  Receipt Date: 20100512
  Transmission Date: 20101027
  Serious: Yes (Hospitalization)
  Sender: FDA-Public Use
  Company Number: JP-JNJFOC-20100506460

PATIENT
  Age: 73 Year
  Sex: Female

DRUGS (3)
  1. CRAVIT [Suspect]
     Indication: CYSTITIS
     Route: 048
  2. GASMOTIN [Concomitant]
     Route: 065
  3. GEMFIBROZIL [Concomitant]
     Route: 065

REACTIONS (3)
  - DISCOMFORT [None]
  - HEPATIC FUNCTION ABNORMAL [None]
  - PYREXIA [None]
